FAERS Safety Report 4828273-1 (Version None)
Quarter: 2005Q4

REPORT INFORMATION
  Report Type: 
  Country: None (occurrence: None)
  Receive Date: 20051114
  Receipt Date: 20051114
  Transmission Date: 20060501
  Serious: Yes (Hospitalization)
  Sender: FDA-Public Use
  Company Number: None

PATIENT
  Age: 49 Year
  Sex: Female
  Weight: 645.4686 kg

DRUGS (1)
  1. ERLOTINIB [Suspect]
     Indication: BREAST CANCER METASTATIC
     Dosage: 150 MG PO QD
     Route: 048
     Dates: start: 20031009, end: 20051005

REACTIONS (3)
  - DISEASE PROGRESSION [None]
  - HYDRONEPHROSIS [None]
  - RENAL FAILURE ACUTE [None]
